FAERS Safety Report 11588444 (Version 2)
Quarter: 2015Q4

REPORT INFORMATION
  Report Type: Spontaneous
  Country: JP (occurrence: JP)
  Receive Date: 20151002
  Receipt Date: 20151007
  Transmission Date: 20160304
  Serious: Yes (Death, Other)
  Sender: FDA-Public Use
  Company Number: JP-ELI_LILLY_AND_COMPANY-JP201510000216

PATIENT
  Age: 81 Year
  Sex: Male
  Weight: 51 kg

DRUGS (2)
  1. PACLITAXEL. [Concomitant]
     Active Substance: PACLITAXEL
     Indication: GASTRIC CANCER
     Dosage: UNK
     Route: 042
     Dates: start: 20150810, end: 20150824
  2. CYRAMZA [Suspect]
     Active Substance: RAMUCIRUMAB
     Indication: GASTRIC CANCER
     Dosage: UNK
     Route: 042
     Dates: start: 20150810, end: 20150824

REACTIONS (10)
  - Hypertension [Unknown]
  - Decreased appetite [Unknown]
  - Abdominal pain [Unknown]
  - Protein urine [Unknown]
  - Nausea [Unknown]
  - Loss of consciousness [Unknown]
  - Facial spasm [Unknown]
  - Faecal incontinence [Unknown]
  - Malaise [Unknown]
  - Malignant neoplasm progression [Fatal]

NARRATIVE: CASE EVENT DATE: 20150817
